FAERS Safety Report 11239725 (Version 2)
Quarter: 2015Q3

REPORT INFORMATION
  Report Type: Report from Study
  Country: AU (occurrence: AU)
  Receive Date: 20150706
  Receipt Date: 20150715
  Transmission Date: 20151125
  Serious: Yes (Hospitalization, Other)
  Sender: FDA-Public Use
  Company Number: PHHY2015AU079353

PATIENT
  Sex: Male

DRUGS (1)
  1. CLOZARIL [Suspect]
     Active Substance: CLOZAPINE
     Indication: SCHIZOPHRENIA
     Dosage: 550 OT, UNK
     Route: 048
     Dates: start: 19940716

REACTIONS (3)
  - Stress [Recovered/Resolved]
  - Psychotic disorder [Recovered/Resolved]
  - Paranoia [Unknown]
